FAERS Safety Report 5156965-6 (Version None)
Quarter: 2006Q4

REPORT INFORMATION
  Report Type: 
  Country: None (occurrence: None)
  Receive Date: 20061124
  Receipt Date: 20061115
  Transmission Date: 20070319
  Serious: Yes (Life-Threatening)
  Sender: FDA-Public Use
  Company Number: FR-ROCHE-471260

PATIENT
  Age: 49 Year
  Sex: Male

DRUGS (6)
  1. TICLID [Suspect]
     Route: 048
     Dates: start: 20050815, end: 20051006
  2. TENORMIN [Concomitant]
     Route: 048
  3. ASPIRIN [Concomitant]
     Route: 048
  4. PERINDOPRIL ERBUMINE [Concomitant]
     Route: 048
  5. TAHOR [Concomitant]
     Route: 048
  6. PLAVIX [Concomitant]
     Route: 048
     Dates: start: 20050815, end: 20050815

REACTIONS (6)
  - AGRANULOCYTOSIS [None]
  - BONE MARROW FAILURE [None]
  - DEHYDRATION [None]
  - GENERAL PHYSICAL HEALTH DETERIORATION [None]
  - HYPOTENSION [None]
  - SEPTIC SHOCK [None]
